FAERS Safety Report 8812190 (Version 3)
Quarter: 2013Q1

REPORT INFORMATION
  Report Type: Spontaneous
  Country: US (occurrence: US)
  Receive Date: 20120927
  Receipt Date: 20130326
  Transmission Date: 20140127
  Serious: Yes (Other)
  Sender: FDA-Public Use
  Company Number: US-ELI_LILLY_AND_COMPANY-US201209004746

PATIENT
  Sex: Female
  Weight: 38.54 kg

DRUGS (4)
  1. FORTEO [Suspect]
     Indication: OSTEOPOROSIS
     Dosage: 20 UG, QD
     Dates: start: 20120607
  2. LISINOPRIL [Concomitant]
     Dosage: 20 MG, QD
  3. ADVAIR [Concomitant]
     Dosage: UNK, QD
  4. PRILOSEC [Concomitant]
     Dosage: UNK, PRN

REACTIONS (3)
  - Age-related macular degeneration [Unknown]
  - Bone pain [Unknown]
  - Arthralgia [Unknown]
